FAERS Safety Report 22973061 (Version 3)
Quarter: 2023Q4

REPORT INFORMATION
  Report Type: Spontaneous
  Country: US (occurrence: US)
  Receive Date: 20230922
  Receipt Date: 20231005
  Transmission Date: 20240110
  Serious: No
  Sender: FDA-Public Use
  Company Number: US-ABBVIE-5419771

PATIENT
  Sex: Male

DRUGS (1)
  1. VRAYLAR [Suspect]
     Active Substance: CARIPRAZINE
     Indication: Product used for unknown indication
     Dosage: 1.5MG
     Route: 048

REACTIONS (8)
  - Dry mouth [Unknown]
  - Tongue disorder [Unknown]
  - Speech disorder [Unknown]
  - Adverse food reaction [Unknown]
  - Tongue pruritus [Unknown]
  - Oropharyngeal pain [Unknown]
  - Glossodynia [Unknown]
  - Tongue injury [Unknown]
